FAERS Safety Report 15809058 (Version 4)
Quarter: 2019Q1

REPORT INFORMATION
  Report Type: Spontaneous
  Country: DE (occurrence: DE)
  Receive Date: 20190110
  Receipt Date: 20190311
  Transmission Date: 20190417
  Serious: Yes (Other)
  Sender: FDA-Public Use
  Company Number: DE-MYLANLABS-2019M1001791

PATIENT
  Age: 40 Year
  Sex: Female

DRUGS (16)
  1. METOPROLOL. [Suspect]
     Active Substance: METOPROLOL
     Indication: PRODUCT USED FOR UNKNOWN INDICATION
     Dosage: 47.5 MILLIGRAM, BID
     Route: 048
     Dates: start: 20130502, end: 20131113
  2. RAMIPRIL. [Suspect]
     Active Substance: RAMIPRIL
     Dosage: 10 UNK
  3. FOLIC ACID. [Concomitant]
     Active Substance: FOLIC ACID
     Indication: PROPHYLAXIS OF NEURAL TUBE DEFECT
     Dosage: 0.4 MILLIGRAM, QD
     Route: 048
  4. METFORMIN [Suspect]
     Active Substance: METFORMIN HYDROCHLORIDE
     Dosage: 1000 MILLIGRAM, BID
     Route: 048
     Dates: start: 20130310, end: 20130425
  5. METHYLDOPA. [Suspect]
     Active Substance: METHYLDOPA
     Indication: PRODUCT USED FOR UNKNOWN INDICATION
     Dosage: 200 MILLIGRAM, Q6H
     Route: 048
     Dates: start: 20130502, end: 20131113
  6. RAMIPRIL. [Suspect]
     Active Substance: RAMIPRIL
     Indication: HYPERTENSION
     Dosage: 10MG, PREGNANCY WEEK 0?6(+4)
     Route: 048
     Dates: start: 20130310, end: 20130425
  7. METFORMIN [Suspect]
     Active Substance: METFORMIN HYDROCHLORIDE
     Dosage: PREGNANCY WEEK 0 TO 6(+4)
     Route: 065
  8. SITAGLIPTIN [Suspect]
     Active Substance: SITAGLIPTIN
     Indication: PRODUCT USED FOR UNKNOWN INDICATION
     Dosage: PREGNANCY WEEK 0 TO 6(+4)
     Route: 065
  9. XELEVIA [Suspect]
     Active Substance: SITAGLIPTIN PHOSPHATE
     Indication: TYPE 2 DIABETES MELLITUS
     Dosage: 100 MILLIGRAM, QD
     Route: 048
     Dates: start: 20130310, end: 20130425
  10. LEVOTHYROXINE. [Suspect]
     Active Substance: LEVOTHYROXINE
     Dosage: PREGNANCY WEEK 0 TO 35(+3)
     Route: 065
  11. INSULIN [Suspect]
     Active Substance: INSULIN NOS
     Indication: PRODUCT USED FOR UNKNOWN INDICATION
     Dosage: PREGNANCY WEEK 0 TO 35(+3)
  12. METOPROLOL. [Suspect]
     Active Substance: METOPROLOL
     Dosage: PREGNANCY WEEK 7(+4) TO 35(+3)
  13. RAMIPRIL. [Suspect]
     Active Substance: RAMIPRIL
     Dosage: 10MG, PREGNANCY WEEK 0?6(+4)
     Route: 048
  14. METFORMIN [Suspect]
     Active Substance: METFORMIN HYDROCHLORIDE
     Indication: TYPE 2 DIABETES MELLITUS
     Dosage: PREGNANCY WEEK 0 TO 6(+4)
  15. METHYLDOPA. [Suspect]
     Active Substance: METHYLDOPA
     Dosage: PREGNANCY WEEK 7(+4) TO 35(+3)
     Route: 065
  16. LEVOTHYROXINE. [Suspect]
     Active Substance: LEVOTHYROXINE
     Indication: PRODUCT USED FOR UNKNOWN INDICATION
     Dosage: 75 MICROGRAM, QD
     Route: 048
     Dates: start: 20130310, end: 20131113

REACTIONS (4)
  - Placental insufficiency [Unknown]
  - Caesarean section [Unknown]
  - Polyhydramnios [Unknown]
  - Maternal exposure during pregnancy [Recovered/Resolved]
